FAERS Safety Report 6347479-6 (Version None)
Quarter: 2009Q3

REPORT INFORMATION
  Report Type: 
  Country: None (occurrence: None)
  Receive Date: 20090910
  Receipt Date: 20090902
  Transmission Date: 20100115
  Serious: Yes (Hospitalization, Other)
  Sender: FDA-Public Use
  Company Number: US-ELI_LILLY_AND_COMPANY-US200909000587

PATIENT
  Sex: Male

DRUGS (9)
  1. HUMALOG [Suspect]
     Dosage: 15 U, OTHER
  2. ASPIRIN [Concomitant]
  3. NAPROXEN [Concomitant]
  4. VITAMIN D [Concomitant]
  5. COENZYME Q10 [Concomitant]
  6. CHLOR-TRIMETON [Concomitant]
  7. LIPITOR [Concomitant]
  8. QUINAPRIL [Concomitant]
  9. LANTUS [Concomitant]

REACTIONS (9)
  - BLOOD GLUCOSE DECREASED [None]
  - BLOOD GLUCOSE FLUCTUATION [None]
  - BLOOD GLUCOSE INCREASED [None]
  - DRUG INEFFECTIVE [None]
  - EXCORIATION [None]
  - FALL [None]
  - HEAD INJURY [None]
  - HYPOGLYCAEMIC UNCONSCIOUSNESS [None]
  - LOSS OF CONSCIOUSNESS [None]
